FAERS Safety Report 10218335 (Version 1)
Quarter: 2014Q2

REPORT INFORMATION
  Report Type: Spontaneous
  Country: GB (occurrence: GB)
  Receive Date: 20140605
  Receipt Date: 20140605
  Transmission Date: 20141212
  Serious: Yes (Death, Other)
  Sender: FDA-Public Use
  Company Number: GB-ACCORD-024019

PATIENT
  Age: 55 Year
  Sex: Male
  Weight: 70 kg

DRUGS (3)
  1. GEMCITABINE/GEMCITABINE HYDROCHLORIDE [Suspect]
     Indication: PANCREATIC CARCINOMA METASTATIC
     Dosage: GEMCITABINE 1000 (DAY 1, 8, 15 OF 28 DAYS)
     Route: 041
     Dates: start: 201201
  2. CAPECITABINE [Concomitant]
     Indication: PANCREATIC CARCINOMA METASTATIC
     Dates: start: 201208, end: 201209
  3. ABRAXANE [Suspect]
     Indication: PANCREATIC CARCINOMA METASTATIC
     Dosage: ABRAXANE 125 (DAY 1, 8, 15 OF 28 DAYS)
     Route: 041
     Dates: start: 201201

REACTIONS (10)
  - Pancreatic carcinoma [Not Recovered/Not Resolved]
  - Fatigue [Unknown]
  - Neuropathy peripheral [Unknown]
  - Neutropenia [Unknown]
  - Anaemia [Unknown]
  - Nausea [Unknown]
  - Disease progression [Not Recovered/Not Resolved]
  - Death [Fatal]
  - Ascites [None]
  - Performance status decreased [None]
